FAERS Safety Report 21416377 (Version 1)
Quarter: 2022Q4

REPORT INFORMATION
  Report Type: Spontaneous
  Country: FR (occurrence: FR)
  Receive Date: 20221006
  Receipt Date: 20221006
  Transmission Date: 20230113
  Serious: Yes (Other)
  Sender: FDA-Public Use
  Company Number: FR-ASTELLAS-2022US034950

PATIENT
  Sex: Female

DRUGS (2)
  1. TACROLIMUS [Suspect]
     Active Substance: TACROLIMUS
     Indication: Liver transplant
     Dosage: UNK UNK, UNKNOWN FREQ.
     Route: 065
     Dates: end: 201203
  2. TACROLIMUS [Suspect]
     Active Substance: TACROLIMUS
     Indication: Renal transplant
     Dosage: UNK UNK, UNKNOWN FREQ.
     Route: 065
     Dates: start: 2016

REACTIONS (5)
  - Hepatic fibrosis [Recovered/Resolved]
  - Disease recurrence [Recovered/Resolved]
  - Chronic hepatitis C [Recovered/Resolved]
  - Hepatitis C [Recovered/Resolved]
  - Chronic kidney disease [Unknown]

NARRATIVE: CASE EVENT DATE: 20080101
